FAERS Safety Report 14174281 (Version 5)
Quarter: 2018Q3

REPORT INFORMATION
  Report Type: Spontaneous
  Country: CA (occurrence: CA)
  Receive Date: 20171109
  Receipt Date: 20180806
  Transmission Date: 20181010
  Serious: Yes (Hospitalization, Other)
  Sender: FDA-Public Use
  Company Number: CA-PFIZER INC-2017481051

PATIENT
  Age: 58 Year
  Sex: Female

DRUGS (3)
  1. PREDNISONE. [Concomitant]
     Active Substance: PREDNISONE
     Dosage: UNK
  2. XELJANZ [Suspect]
     Active Substance: TOFACITINIB CITRATE
     Indication: RHEUMATOID ARTHRITIS
     Dosage: 5 MG, 2X/DAY
     Route: 048
     Dates: start: 20170717, end: 201805
  3. TYLENOL ARTHRITIS PAIN [Concomitant]
     Active Substance: ACETAMINOPHEN
     Indication: PAIN
     Dosage: UNK UNK, AS NEEDED

REACTIONS (6)
  - Ear infection [Not Recovered/Not Resolved]
  - Thrombosis [Recovered/Resolved]
  - Deafness unilateral [Not Recovered/Not Resolved]
  - Renal failure [Recovered/Resolved]
  - Condition aggravated [Not Recovered/Not Resolved]
  - Mastoiditis [Unknown]

NARRATIVE: CASE EVENT DATE: 2017
